FAERS Safety Report 6236951-5 (Version None)
Quarter: 2009Q2

REPORT INFORMATION
  Report Type: 
  Country: None (occurrence: None)
  Receive Date: 20090619
  Receipt Date: 20090224
  Transmission Date: 20091009
  Serious: No
  Sender: FDA-Public Use
  Company Number: US-ASTRAZENECA-2009UW05153

PATIENT
  Age: 88 Year
  Sex: Female
  Weight: 48.1 kg

DRUGS (3)
  1. SYMBICORT [Suspect]
     Indication: ASTHMA
     Dosage: 160/4.5 MCG
     Route: 055
     Dates: start: 20090124
  2. PRILOSEC [Concomitant]
     Indication: DYSPEPSIA
     Route: 048
  3. EVISTA [Concomitant]

REACTIONS (2)
  - DYSPEPSIA [None]
  - THROAT IRRITATION [None]
